FAERS Safety Report 17077268 (Version 1)
Quarter: 2019Q4

REPORT INFORMATION
  Report Type: Spontaneous
  Country: NL (occurrence: NL)
  Receive Date: 20191126
  Receipt Date: 20191126
  Transmission Date: 20200122
  Serious: Yes (Other)
  Sender: FDA-Public Use
  Company Number: NL-MYLANLABS-2019M1115014

PATIENT
  Sex: Male
  Weight: 80 kg

DRUGS (2)
  1. TEMAZEPAM. [Concomitant]
     Active Substance: TEMAZEPAM
     Dosage: UNK
  2. MIRTAZAPINE. [Suspect]
     Active Substance: MIRTAZAPINE
     Indication: INSOMNIA
     Dosage: 7 MILLIGRAM, QD, 1DD1
     Route: 048
     Dates: start: 20190101, end: 20190910

REACTIONS (2)
  - Cataplexy [Recovered/Resolved]
  - Off label use [Unknown]
